FAERS Safety Report 19605322 (Version 1)
Quarter: 2021Q3

REPORT INFORMATION
  Report Type: Spontaneous
  Country: GB (occurrence: GB)
  Receive Date: 20210723
  Receipt Date: 20210723
  Transmission Date: 20211014
  Serious: Yes (Life-Threatening, Hospitalization, Other)
  Sender: FDA-Public Use
  Company Number: NVSC2021GB163640

PATIENT
  Age: 53 Year
  Sex: Female

DRUGS (3)
  1. MYCOPHENOLIC ACID. [Suspect]
     Active Substance: MYCOPHENOLIC ACID
     Indication: IMMUNOSUPPRESSION
     Dosage: UNK
     Route: 065
  2. TACROLIMUS. [Suspect]
     Active Substance: TACROLIMUS
     Indication: IMMUNOSUPPRESSANT DRUG THERAPY
     Dosage: 1 MG, BID (VARIABLE DOSING)
     Route: 048
     Dates: start: 20171108
  3. PREDNISOLONE. [Suspect]
     Active Substance: PREDNISOLONE
     Indication: IMMUNOSUPPRESSION
     Dosage: UNK
     Route: 065

REACTIONS (7)
  - Skin ulcer [Recovering/Resolving]
  - Disseminated trichosporonosis [Recovered/Resolved]
  - Endophthalmitis [Unknown]
  - Metastases to meninges [Unknown]
  - Skin plaque [Unknown]
  - Aortic aneurysm [Unknown]
  - Fungal skin infection [Recovered/Resolved]

NARRATIVE: CASE EVENT DATE: 201903
